FAERS Safety Report 17430008 (Version 3)
Quarter: 2020Q1

REPORT INFORMATION
  Report Type: Spontaneous
  Country: US (occurrence: US)
  Receive Date: 20200218
  Receipt Date: 20200224
  Transmission Date: 20200409
  Serious: No
  Sender: FDA-Public Use
  Company Number: US-PFIZER INC-2020064939

PATIENT
  Age: 7 Decade
  Sex: Male

DRUGS (3)
  1. LIPITOR [Suspect]
     Active Substance: ATORVASTATIN CALCIUM
     Indication: BLOOD CHOLESTEROL INCREASED
     Dosage: UNK (REPORTED AS LOWER DOSE)
     Dates: start: 2015
  2. LIPITOR [Suspect]
     Active Substance: ATORVASTATIN CALCIUM
     Indication: CARDIAC DISORDER
     Dosage: 50 MG, UNK
  3. LIPITOR [Suspect]
     Active Substance: ATORVASTATIN CALCIUM
     Dosage: 60 MG (SINGLE TABS ARE 40 MG AND HE TAKES AN ADDITIONAL HALF TABLET), 1X/DAY (EACH NIGHT)
     Route: 048

REACTIONS (1)
  - Hyperaesthesia [Not Recovered/Not Resolved]
